FAERS Safety Report 9880505 (Version 2)
Quarter: 2014Q1

REPORT INFORMATION
  Report Type: Spontaneous
  Country: FR (occurrence: FR)
  Receive Date: 20140207
  Receipt Date: 20140217
  Transmission Date: 20141002
  Serious: Yes (Other)
  Sender: FDA-Public Use
  Company Number: FR-JNJFOC-20140202684

PATIENT
  Age: 95 Year
  Sex: Female

DRUGS (4)
  1. XARELTO [Suspect]
     Indication: EMBOLISM VENOUS
     Route: 048
     Dates: start: 201304, end: 201304
  2. XARELTO [Suspect]
     Indication: EMBOLISM VENOUS
     Route: 048
     Dates: start: 201304, end: 20140120
  3. XARELTO [Suspect]
     Indication: VENOUS THROMBOSIS
     Route: 048
     Dates: start: 201304, end: 201304
  4. XARELTO [Suspect]
     Indication: VENOUS THROMBOSIS
     Route: 048
     Dates: start: 201304, end: 20140120

REACTIONS (8)
  - Renal failure [Unknown]
  - Thrombocytopenia [Unknown]
  - Fluid intake reduced [Unknown]
  - Fatigue [Unknown]
  - Leukocytosis [Unknown]
  - Urinary tract infection [Unknown]
  - Medication error [Unknown]
  - Monocyte count increased [Unknown]
